FAERS Safety Report 14296787 (Version 1)
Quarter: 2017Q4

REPORT INFORMATION
  Report Type: Other
  Country: NL (occurrence: NL)
  Receive Date: 20171218
  Receipt Date: 20171218
  Transmission Date: 20180321
  Serious: Yes (Hospitalization)
  Sender: FDA-Public Use
  Company Number: NL-RARE DISEASE THERAPEUTICS, INC.-2037287

PATIENT
  Age: 34 Year
  Sex: Male

DRUGS (4)
  1. PURIXAN [Suspect]
     Active Substance: MERCAPTOPURINE
     Indication: CROHN^S DISEASE
     Dates: start: 20171112
  2. OMEPRAZOLE. [Concomitant]
     Active Substance: OMEPRAZOLE
     Route: 065
  3. MESALAMINE. [Concomitant]
     Active Substance: MESALAMINE
     Route: 065
  4. BUDESONIDE. [Concomitant]
     Active Substance: BUDESONIDE
     Route: 065

REACTIONS (3)
  - Abdominal pain [Recovering/Resolving]
  - Pancreatitis [Recovering/Resolving]
  - Off label use [None]

NARRATIVE: CASE EVENT DATE: 20171112
